FAERS Safety Report 19738731 (Version 1)
Quarter: 2021Q3

REPORT INFORMATION
  Report Type: Spontaneous
  Country: US (occurrence: US)
  Receive Date: 20210823
  Receipt Date: 20210823
  Transmission Date: 20211014
  Serious: Yes (Hospitalization)
  Sender: FDA-Public Use
  Company Number: None

PATIENT
  Age: 94 Year
  Sex: Male
  Weight: 57.06 kg

DRUGS (1)
  1. REGEN?COV [Suspect]
     Active Substance: CASIRIVIMAB\IMDEVIMAB
     Indication: COVID-19
     Route: 042
     Dates: start: 20210821, end: 20210821

REACTIONS (4)
  - Body temperature increased [None]
  - Oxygen saturation decreased [None]
  - Hypotension [None]
  - Blood pressure decreased [None]

NARRATIVE: CASE EVENT DATE: 20210821
